FAERS Safety Report 23252207 (Version 3)
Quarter: 2023Q4

REPORT INFORMATION
  Report Type: Spontaneous
  Country: BR (occurrence: BR)
  Receive Date: 20231201
  Receipt Date: 20231212
  Transmission Date: 20240110
  Serious: Yes (Other)
  Sender: FDA-Public Use
  Company Number: BR-MYLANLABS-2020004894

PATIENT
  Sex: Female
  Weight: 58 kg

DRUGS (1)
  1. XALATAN [Suspect]
     Active Substance: LATANOPROST
     Indication: Glaucoma
     Dosage: 1 GTT DROPS
     Route: 065
     Dates: start: 2003

REACTIONS (4)
  - Cataract [Unknown]
  - Corneal disorder [Not Recovered/Not Resolved]
  - Intraocular pressure increased [Unknown]
  - Myopia [Not Recovered/Not Resolved]

NARRATIVE: CASE EVENT DATE: 20130101
